FAERS Safety Report 9900435 (Version 2)
Quarter: 2014Q1

REPORT INFORMATION
  Report Type: Spontaneous
  Country: US (occurrence: US)
  Receive Date: 20140217
  Receipt Date: 20140217
  Transmission Date: 20141002
  Serious: Yes (Death)
  Sender: FDA-Public Use
  Company Number: US-GE HEALTHCARE MEDICAL DIAGNOSTICS-OSCN-PR-0809S-0546

PATIENT
  Age: 25 Year
  Sex: Male

DRUGS (3)
  1. OMNISCAN [Suspect]
     Indication: PRODUCT USED FOR UNKNOWN INDICATION
     Route: 042
     Dates: start: 20060221, end: 20060221
  2. OMNISCAN [Suspect]
     Route: 042
     Dates: start: 20060411, end: 20060411
  3. OMNISCAN [Suspect]
     Route: 042
     Dates: start: 20060222, end: 20060222

REACTIONS (1)
  - Nephrogenic systemic fibrosis [Fatal]
